FAERS Safety Report 17915403 (Version 1)
Quarter: 2020Q2

REPORT INFORMATION
  Report Type: Report from Study
  Country: CO (occurrence: CO)
  Receive Date: 20200619
  Receipt Date: 20200619
  Transmission Date: 20200714
  Serious: Yes (Life-Threatening, Other)
  Sender: FDA-Public Use
  Company Number: CO-ROCHE-2626167

PATIENT
  Age: 9 Year
  Sex: Female
  Weight: 46 kg

DRUGS (3)
  1. XOLAIR [Suspect]
     Active Substance: OMALIZUMAB
     Indication: ASTHMA
     Route: 058
     Dates: start: 201611
  2. XOLAIR [Suspect]
     Active Substance: OMALIZUMAB
     Dosage: POWDER FOR RECONSTITUTION
     Route: 058
     Dates: start: 201808
  3. XOLAIR [Suspect]
     Active Substance: OMALIZUMAB
     Dosage: PRE-FILLED SYRINGE
     Route: 058
     Dates: start: 20170629

REACTIONS (12)
  - Rash [Unknown]
  - Application site rash [Unknown]
  - Abdominal pain [Unknown]
  - Anaphylactic reaction [Recovered/Resolved]
  - Skin discolouration [Not Recovered/Not Resolved]
  - Asthmatic crisis [Not Recovered/Not Resolved]
  - Dyspnoea [Not Recovered/Not Resolved]
  - Abdominal pain upper [Not Recovered/Not Resolved]
  - Cyanosis [Unknown]
  - Diarrhoea [Not Recovered/Not Resolved]
  - Drug ineffective [Unknown]
  - Dermatitis allergic [Not Recovered/Not Resolved]

NARRATIVE: CASE EVENT DATE: 201611
